FAERS Safety Report 12965803 (Version 1)
Quarter: 2016Q4

REPORT INFORMATION
  Report Type: Spontaneous
  Country: US (occurrence: US)
  Receive Date: 20161122
  Receipt Date: 20161122
  Transmission Date: 20170207
  Serious: No
  Sender: FDA-Public Use
  Company Number: US-ASTRAZENECA-2016SF19445

PATIENT
  Age: 62 Year
  Sex: Female
  Weight: 90.7 kg

DRUGS (1)
  1. SYMBICORT [Suspect]
     Active Substance: BUDESONIDE\FORMOTEROL FUMARATE DIHYDRATE
     Indication: PULMONARY MASS
     Dosage: 160/4.5 MCG INH ONE PUFF TWICE PER DAY
     Route: 055
     Dates: start: 2015

REACTIONS (6)
  - Vision blurred [Not Recovered/Not Resolved]
  - Cough [Not Recovered/Not Resolved]
  - Product use issue [Unknown]
  - Weight decreased [Unknown]
  - Upper-airway cough syndrome [Not Recovered/Not Resolved]
  - Visual impairment [Unknown]

NARRATIVE: CASE EVENT DATE: 2015
